FAERS Safety Report 25706485 (Version 1)
Quarter: 2025Q3

REPORT INFORMATION
  Report Type: Spontaneous
  Country: EU (occurrence: EU)
  Receive Date: 20250820
  Receipt Date: 20250820
  Transmission Date: 20251020
  Serious: Yes (Hospitalization)
  Sender: AIRGAS
  Company Number: EU-ALSI-2025000226

PATIENT
  Sex: Male

DRUGS (1)
  1. NITROUS OXIDE [Suspect]
     Active Substance: NITROUS OXIDE
     Indication: Substance use

REACTIONS (2)
  - Gait disturbance [Recovering/Resolving]
  - Paraesthesia [Recovering/Resolving]
